FAERS Safety Report 9904944 (Version 1)
Quarter: 2013Q2

REPORT INFORMATION
  Report Type: Spontaneous
  Country: US (occurrence: None)
  Receive Date: 20130305
  Receipt Date: 20130305
  Transmission Date: 20140414
  Serious: Yes (Other)
  Sender: FDA-Public Use
  Company Number: 163-21880-12030619

PATIENT
  Sex: Male

DRUGS (1)
  1. REVLIMID (LENALIDOMIDE) (CAPSULES) [Suspect]
     Indication: PLASMA CELL MYELOMA
     Dosage: 7.5 MG, 21 IN 28 D, PO
     Route: 048
     Dates: start: 20110616

REACTIONS (3)
  - Blood calcium decreased [None]
  - Rash [None]
  - Pruritus [None]
